FAERS Safety Report 4673006-5 (Version None)
Quarter: 2005Q2

REPORT INFORMATION
  Report Type: 
  Country: None (occurrence: None)
  Receive Date: 20050523
  Receipt Date: 20050510
  Transmission Date: 20051028
  Serious: Yes (Hospitalization, Other)
  Sender: FDA-Public Use
  Company Number: 183428

PATIENT
  Age: 47 Year
  Sex: Male
  Weight: 100 kg

DRUGS (7)
  1. AVONEX [Suspect]
     Indication: RELAPSING-REMITTING MULTIPLE SCLEROSIS
     Dosage: 15 UG; QW; IM; 15 UG; QW; IM; 30 UG; QW; IM
     Route: 030
     Dates: start: 20010801, end: 20030901
  2. AVONEX [Suspect]
     Indication: RELAPSING-REMITTING MULTIPLE SCLEROSIS
     Dosage: 15 UG; QW; IM; 15 UG; QW; IM; 30 UG; QW; IM
     Route: 030
     Dates: start: 20031001, end: 20031030
  3. AVONEX [Suspect]
     Indication: RELAPSING-REMITTING MULTIPLE SCLEROSIS
     Dosage: 15 UG; QW; IM; 15 UG; QW; IM; 30 UG; QW; IM
     Route: 030
     Dates: start: 20031106, end: 20031101
  4. AVONEX [Suspect]
     Indication: RELAPSING-REMITTING MULTIPLE SCLEROSIS
     Dosage: 30 UG; QW; IM; 15 UG; QW; IM
     Route: 030
     Dates: start: 20031113, end: 20031120
  5. AVONEX [Suspect]
     Indication: RELAPSING-REMITTING MULTIPLE SCLEROSIS
     Dosage: 30 UG; QW; IM; 15 UG; QW; IM
     Route: 030
     Dates: start: 20031226, end: 20040122
  6. LIPIREX (FENOFIBRATE) [Concomitant]
  7. ZELITREX [Concomitant]

REACTIONS (9)
  - CHILLS [None]
  - COMPUTERISED TOMOGRAM ABNORMAL [None]
  - COUGH [None]
  - HODGKIN'S DISEASE [None]
  - INFLUENZA LIKE ILLNESS [None]
  - LEUKOCYTOSIS [None]
  - NEUTROPHIL COUNT INCREASED [None]
  - PYREXIA [None]
  - RED BLOOD CELL SEDIMENTATION RATE INCREASED [None]
